FAERS Safety Report 26125073 (Version 1)
Quarter: 2025Q4

REPORT INFORMATION
  Report Type: Spontaneous
  Country: EU (occurrence: EU)
  Receive Date: 20251205
  Receipt Date: 20251205
  Transmission Date: 20260117
  Serious: Yes (Other)
  Sender: RANBAXY
  Company Number: EU-SUN PHARMACEUTICAL INDUSTRIES LTD-2025RR-539930

PATIENT
  Age: 69 Year
  Sex: Female

DRUGS (1)
  1. ASPIRIN [Suspect]
     Active Substance: ASPIRIN
     Indication: Haemodialysis
     Dosage: UNK
     Route: 065

REACTIONS (3)
  - Dieulafoy^s vascular malformation [Unknown]
  - Upper gastrointestinal haemorrhage [Unknown]
  - Underdose [Unknown]
